FAERS Safety Report 8074309-7 (Version None)
Quarter: 2012Q1

REPORT INFORMATION
  Report Type: 
  Country: None (occurrence: None)
  Receive Date: 20120120
  Receipt Date: 20120109
  Transmission Date: 20120608
  Serious: Yes (Other)
  Sender: FDA-Public Use
  Company Number: AUR-APL-2012-00430

PATIENT
  Age: 87 Year
  Sex: Female
  Weight: 68.0396 kg

DRUGS (6)
  1. SIMVASTATIN [Suspect]
     Indication: HYPERLIPIDAEMIA
     Dates: start: 20100101
  2. COQ10 (UBIDECARENONE) [Concomitant]
  3. ISOSORBIDE (ISOSORBIDE) [Concomitant]
  4. ASPIRIN [Concomitant]
  5. CARDIZEM LA [Concomitant]
  6. SIMVASTATIN [Suspect]
     Indication: HYPERLIPIDAEMIA
     Dosage: (20 MG, 1 D) ORAL
     Route: 048
     Dates: start: 20110801

REACTIONS (6)
  - MYALGIA [None]
  - IRRITABILITY [None]
  - DECREASED APPETITE [None]
  - URINARY TRACT INFECTION [None]
  - ANTI-THYROID ANTIBODY POSITIVE [None]
  - ANXIETY [None]
